FAERS Safety Report 16714209 (Version 1)
Quarter: 2019Q3

REPORT INFORMATION
  Report Type: Spontaneous
  Country: US (occurrence: US)
  Receive Date: 20190819
  Receipt Date: 20190819
  Transmission Date: 20191004
  Serious: No
  Sender: FDA-Public Use
  Company Number: US-MALLINCKRODT-T201803120

PATIENT
  Sex: Female

DRUGS (1)
  1. OXYCODONE/ACETAMINOPHEN [Suspect]
     Active Substance: ACETAMINOPHEN\OXYCODONE HYDROCHLORIDE
     Indication: PAIN
     Dosage: 10/325MG
     Route: 048
     Dates: start: 20180714

REACTIONS (6)
  - Anxiety [Unknown]
  - Nausea [Unknown]
  - Feeling abnormal [Unknown]
  - Blood glucose abnormal [Unknown]
  - Movement disorder [Unknown]
  - Migraine [Unknown]

NARRATIVE: CASE EVENT DATE: 201807
